FAERS Safety Report 13477662 (Version 2)
Quarter: 2017Q2

REPORT INFORMATION
  Report Type: Spontaneous
  Country: US (occurrence: US)
  Receive Date: 20170425
  Receipt Date: 20170505
  Transmission Date: 20170830
  Serious: No
  Sender: FDA-Public Use
  Company Number: US-ASTRAZENECA-2017SE40811

PATIENT
  Sex: Female

DRUGS (1)
  1. NEXIUM [Suspect]
     Active Substance: ESOMEPRAZOLE MAGNESIUM
     Route: 048

REACTIONS (7)
  - Malabsorption [Unknown]
  - Dyspnoea [Unknown]
  - Malaise [Unknown]
  - Vitamin B12 deficiency [Unknown]
  - Confusional state [Unknown]
  - Angular cheilitis [Unknown]
  - Limb discomfort [Unknown]
